FAERS Safety Report 10934669 (Version 2)
Quarter: 2015Q2

REPORT INFORMATION
  Report Type: Report from Study
  Country: AU (occurrence: AU)
  Receive Date: 20150320
  Receipt Date: 20150428
  Transmission Date: 20150821
  Serious: Yes (Hospitalization)
  Sender: FDA-Public Use
  Company Number: AU-SA-2015SA033632

PATIENT
  Age: 53 Year
  Sex: Male
  Weight: 130 kg

DRUGS (7)
  1. LANTUS [Suspect]
     Active Substance: INSULIN GLARGINE
     Dosage: 42 UNITS IN THE MORNING AND 42 UNITS IN THE EVENING DOSE:42 UNIT(S)
     Route: 058
     Dates: start: 20111008
  2. DIAMICRON [Concomitant]
     Active Substance: GLICLAZIDE
     Indication: DIABETES MELLITUS
     Dosage: STRENGTH: 60 MG
     Route: 048
     Dates: start: 2002
  3. LANTUS [Suspect]
     Active Substance: INSULIN GLARGINE
     Dosage: 72 UNITS IN THE MORNING AND 72 UNITS IN THE EVENING DOSE:72 UNIT(S)
     Route: 058
     Dates: start: 2009
  4. CARTIA XT [Concomitant]
     Active Substance: DILTIAZEM HYDROCHLORIDE
     Indication: DIABETES MELLITUS
     Route: 048
     Dates: start: 2007
  5. DIABEX [Concomitant]
     Active Substance: METFORMIN HYDROCHLORIDE
     Indication: DIABETES MELLITUS
     Route: 048
     Dates: start: 2002
  6. CLOPIDOGREL [Concomitant]
     Active Substance: CLOPIDOGREL BISULFATE
     Indication: DIABETES MELLITUS
     Route: 048
     Dates: start: 2007
  7. NOVORAPID [Concomitant]
     Active Substance: INSULIN ASPART
     Indication: DIABETES MELLITUS
     Dosage: DOSE:26 UNIT(S)
     Route: 058
     Dates: start: 2009

REACTIONS (7)
  - Drug administration error [Unknown]
  - Ear infection [Not Recovered/Not Resolved]
  - Nail growth abnormal [Not Recovered/Not Resolved]
  - Muscle spasms [Recovered/Resolved]
  - Localised infection [Not Recovered/Not Resolved]
  - Blood glucose increased [Unknown]
  - Scrotal abscess [Unknown]

NARRATIVE: CASE EVENT DATE: 2013
